FAERS Safety Report 8056035-3 (Version None)
Quarter: 2012Q1

REPORT INFORMATION
  Report Type: 
  Country: None (occurrence: None)
  Receive Date: 20120119
  Receipt Date: 20120109
  Transmission Date: 20120608
  Serious: Yes (Hospitalization)
  Sender: FDA-Public Use
  Company Number: US-JNJFOC-20111204895

PATIENT
  Sex: Female
  Weight: 36.6 kg

DRUGS (36)
  1. FLAGYL [Suspect]
     Indication: PRODUCT USED FOR UNKNOWN INDICATION
  2. MULTI-VITAMINS [Concomitant]
  3. MIDAZOLAM [Concomitant]
  4. CEFTRIAXONE [Concomitant]
  5. PEPTAMEN [Concomitant]
  6. ACETAMINOPHEN [Concomitant]
  7. HUMIRA [Suspect]
     Indication: CROHN'S DISEASE
     Dates: start: 20090218
  8. LOPERAMIDE [Concomitant]
  9. DEXTRAN INJ [Concomitant]
     Route: 042
  10. RANITIDINE [Concomitant]
  11. REMICADE [Suspect]
     Indication: CROHN'S DISEASE
     Route: 042
     Dates: start: 20080205, end: 20090114
  12. MORPHINE [Concomitant]
  13. VANCOMYCIN [Concomitant]
  14. LORAZEPAM [Concomitant]
  15. KETOROLAC TROMETHAMINE [Concomitant]
  16. DIPHENHYDRAMINE HCL [Concomitant]
  17. PREVACID [Concomitant]
  18. PIPERACILLIN AND TAZOBACTAM [Concomitant]
  19. BISACODYL [Concomitant]
  20. ONDANSETRON [Concomitant]
  21. POLYETHYLENE GLYCOL [Concomitant]
  22. HYDROCORTISONE [Suspect]
     Indication: PRODUCT USED FOR UNKNOWN INDICATION
  23. ANTIBIOTICS [Concomitant]
     Indication: INFLAMMATORY BOWEL DISEASE
  24. IRON [Concomitant]
  25. TPN [Concomitant]
  26. ZINC SULFATE [Concomitant]
  27. NALBUPHINE [Concomitant]
  28. PANTOPRAZOLE [Concomitant]
  29. CIPROFLOXACIN [Suspect]
     Indication: PRODUCT USED FOR UNKNOWN INDICATION
  30. CHOLECALCIFEROL [Concomitant]
  31. FOLIC ACID [Concomitant]
  32. FISH OIL [Concomitant]
  33. FENTANYL [Concomitant]
  34. METHOTREXATE [Suspect]
     Indication: PRODUCT USED FOR UNKNOWN INDICATION
  35. PREDNISONE TAB [Suspect]
     Indication: PRODUCT USED FOR UNKNOWN INDICATION
  36. MINERALS NOS [Concomitant]

REACTIONS (1)
  - ABDOMINAL ABSCESS [None]
